FAERS Safety Report 13011453 (Version 1)
Quarter: 2016Q4

REPORT INFORMATION
  Report Type: Spontaneous
  Country: GB (occurrence: GB)
  Receive Date: 20161209
  Receipt Date: 20161209
  Transmission Date: 20170207
  Serious: Yes (Other)
  Sender: FDA-Public Use
  Company Number: GB-CIPLA LTD.-2015GB08661

PATIENT

DRUGS (3)
  1. WARFARIN [Suspect]
     Active Substance: WARFARIN
     Indication: INTERNATIONAL NORMALISED RATIO INCREASED
     Dosage: UNK
     Route: 065
     Dates: start: 2011
  2. BIOPROLOL [Concomitant]
     Dosage: 2.5 MG, UNK
     Route: 065
  3. PRAVASTATIN. [Suspect]
     Active Substance: PRAVASTATIN
     Indication: ATRIAL FIBRILLATION
     Dosage: 10 MG, UNK
     Route: 048
     Dates: start: 2015, end: 2015

REACTIONS (6)
  - Product substitution issue [Unknown]
  - Drug interaction [Unknown]
  - Myalgia [Unknown]
  - International normalised ratio increased [Unknown]
  - Arthralgia [Unknown]
  - Pain in extremity [Unknown]
